FAERS Safety Report 4760314-2 (Version None)
Quarter: 2005Q3

REPORT INFORMATION
  Report Type: 
  Country: None (occurrence: None)
  Receive Date: 20050831
  Receipt Date: 20050823
  Transmission Date: 20060218
  Serious: Yes (Death)
  Sender: FDA-Public Use
  Company Number: 2005118295

PATIENT
  Age: 71 Year
  Sex: Male

DRUGS (6)
  1. LYRICA [Suspect]
     Indication: NEUROPATHIC PAIN
     Dosage: 150 MG (75 MG, 2 IN 1 D),
     Dates: start: 20050811
  2. HUMULIN N [Concomitant]
  3. ASPILETS (ACETYLSALICYLIC ACID) [Concomitant]
  4. ALL OTHER THERAPEUTIC PRODUCTS (ALL OTHER THERAPEUTIC PRODUCTS) [Concomitant]
  5. PLETAL [Concomitant]
  6. APROVEL (IRBESARTAN) [Concomitant]

REACTIONS (4)
  - ACUTE MYOCARDIAL INFARCTION [None]
  - DIARRHOEA [None]
  - HAEMOLYTIC ANAEMIA [None]
  - VOMITING [None]
